FAERS Safety Report 5664895-6 (Version None)
Quarter: 2008Q1

REPORT INFORMATION
  Report Type: 
  Country: None (occurrence: None)
  Receive Date: 20080314
  Receipt Date: 20080307
  Transmission Date: 20080703
  Serious: Yes (Death, Life-Threatening, Hospitalization, Other)
  Sender: FDA-Public Use
  Company Number: HQWYE830527AUG07

PATIENT
  Sex: Female
  Weight: 51 kg

DRUGS (13)
  1. MYLOTARG [Suspect]
     Indication: ACUTE MYELOID LEUKAEMIA
     Route: 041
     Dates: start: 20070620, end: 20070620
  2. MUCOSTA [Concomitant]
     Indication: PROPHYLAXIS
     Route: 048
     Dates: start: 20070418
  3. BAKTAR [Concomitant]
     Indication: PROPHYLAXIS
     Route: 048
     Dates: start: 20070425
  4. ASTOMIN [Concomitant]
     Route: 048
     Dates: start: 20070518
  5. ALPRAZOLAM [Concomitant]
     Route: 048
     Dates: start: 20070525
  6. MAXIPIME [Concomitant]
     Indication: PROPHYLAXIS
     Route: 041
     Dates: start: 20070615, end: 20070628
  7. ZOLPIDEM TARTRATE [Concomitant]
     Dosage: 5 MG (FREQUENCY NOT PROVIDED)
     Route: 048
     Dates: start: 20070514
  8. TARGOCID [Concomitant]
     Indication: PROPHYLAXIS
     Route: 041
     Dates: start: 20070601, end: 20070705
  9. FUNGUARD [Concomitant]
     Route: 041
     Dates: start: 20070605, end: 20070704
  10. AMBISOME [Concomitant]
     Route: 041
     Dates: start: 20070501, end: 20070627
  11. SAXIZON [Concomitant]
     Indication: ACUTE MYELOID LEUKAEMIA
     Route: 041
     Dates: start: 20070605, end: 20070626
  12. ZANTAC [Concomitant]
     Indication: PROPHYLAXIS
     Route: 048
     Dates: start: 20070418
  13. LOXONIN [Concomitant]
     Indication: BRONCHOPULMONARY ASPERGILLOSIS
     Dosage: 60 MG (FREQUENCY NOT PROVIDED)
     Route: 048
     Dates: start: 20070420

REACTIONS (8)
  - ACUTE GRAFT VERSUS HOST DISEASE [None]
  - BRONCHOPULMONARY ASPERGILLOSIS [None]
  - EOSINOPHILIA [None]
  - FEBRILE NEUTROPENIA [None]
  - HERPES ZOSTER [None]
  - HYPOKALAEMIA [None]
  - INTERSTITIAL LUNG DISEASE [None]
  - LIVER DISORDER [None]
